FAERS Safety Report 4492753-1 (Version None)
Quarter: 2004Q4

REPORT INFORMATION
  Report Type: 
  Country: None (occurrence: None)
  Receive Date: 20041028
  Receipt Date: 20041013
  Transmission Date: 20050328
  Serious: Yes (Hospitalization)
  Sender: FDA-Public Use
  Company Number: SAGL-ZLB/04/24/UNK

PATIENT
  Age: 68 Year
  Sex: Male
  Weight: 106 kg

DRUGS (1)
  1. SANDOGLOBULIN [Suspect]
     Indication: PARAPROTEINAEMIA
     Dosage: 42 G, ONCE , I.V.
     Route: 042
     Dates: start: 20040930, end: 20040930

REACTIONS (4)
  - DIZZINESS [None]
  - DYSPNOEA [None]
  - HEADACHE [None]
  - PERIPHERAL COLDNESS [None]
